FAERS Safety Report 6435085-4 (Version None)
Quarter: 2009Q4

REPORT INFORMATION
  Report Type: 
  Country: None (occurrence: None)
  Receive Date: 20091109
  Receipt Date: 20091109
  Transmission Date: 20100525
  Serious: No
  Sender: FDA-Public Use
  Company Number: None

PATIENT
  Age: 29 Year
  Sex: Male
  Weight: 91 kg

DRUGS (2)
  1. VENLAFAXINE [Suspect]
     Indication: DEPRESSION
     Dosage: 75 MG EVERY DAY PO
     Route: 048
     Dates: start: 20091020, end: 20091106
  2. VENLAFAXINE [Suspect]
     Indication: GENERALISED ANXIETY DISORDER
     Dosage: 75 MG EVERY DAY PO
     Route: 048
     Dates: start: 20091020, end: 20091106

REACTIONS (1)
  - PRIAPISM [None]
